FAERS Safety Report 6040395-9 (Version None)
Quarter: 2009Q1

REPORT INFORMATION
  Report Type: 
  Country: None (occurrence: None)
  Receive Date: 20090116
  Receipt Date: 20080306
  Transmission Date: 20090719
  Serious: No
  Sender: FDA-Public Use
  Company Number: US-BRISTOL-MYERS SQUIBB COMPANY-14104509

PATIENT
  Age: 13 Year
  Sex: Female

DRUGS (2)
  1. ABILIFY [Suspect]
     Dosage: INCREASED FROM 7.5MG TO 10 MG
  2. ZOLOFT [Concomitant]

REACTIONS (1)
  - LARYNGOSPASM [None]
